FAERS Safety Report 4418058-2 (Version None)
Quarter: 2004Q3

REPORT INFORMATION
  Report Type: 
  Country: None (occurrence: None)
  Receive Date: 20040803
  Receipt Date: 20040721
  Transmission Date: 20050211
  Serious: Yes (Hospitalization)
  Sender: FDA-Public Use
  Company Number: 2004-0007204

PATIENT
  Age: 40 Year
  Sex: Male

DRUGS (5)
  1. VIREAD (TENOFOVIR DISOPROXIL FUMARATE) (300 MILLIGRAM, TABLET) [Suspect]
     Indication: HIV INFECTION
     Dosage: 300 MG, 1 IN 1 D, ORAL
     Route: 048
     Dates: start: 20010801
  2. LAMUVIDINE (LAMIVUDINE) [Concomitant]
  3. STAVUDINE (STAVUDINE) [Concomitant]
  4. EFAVIREZ (EFAVIRENZ) [Concomitant]
  5. ENFUVIRTIDE (ENFUVIRTIDE) [Concomitant]

REACTIONS (6)
  - BIOPSY BRAIN ABNORMAL [None]
  - BRAIN NEOPLASM [None]
  - BRAIN OEDEMA [None]
  - CYTOMEGALOVIRUS CHORIORETINITIS [None]
  - EPILEPSY [None]
  - MYCOBACTERIUM AVIUM COMPLEX INFECTION [None]
